FAERS Safety Report 8258746-3 (Version None)
Quarter: 2012Q2

REPORT INFORMATION
  Report Type: 
  Country: None (occurrence: None)
  Receive Date: 20120404
  Receipt Date: 20120404
  Transmission Date: 20120825
  Serious: Yes (Other)
  Sender: FDA-Public Use
  Company Number: None

PATIENT
  Age: 21 Year
  Sex: Male
  Weight: 79.378 kg

DRUGS (2)
  1. LAMOTRGINE [Suspect]
     Indication: EPILEPSY
     Dosage: 200.0 MG
     Route: 048
     Dates: start: 20111001, end: 20111231
  2. LAMOTRGINE [Concomitant]
     Dosage: 25MG
     Route: 048

REACTIONS (2)
  - CONVULSION [None]
  - PRODUCT SUBSTITUTION ISSUE [None]
